FAERS Safety Report 23154858 (Version 1)
Quarter: 2023Q4

REPORT INFORMATION
  Report Type: Spontaneous
  Country: GB (occurrence: GB)
  Receive Date: 20231107
  Receipt Date: 20231107
  Transmission Date: 20240110
  Serious: Yes (Other)
  Sender: FDA-Public Use
  Company Number: None

PATIENT
  Sex: Male

DRUGS (1)
  1. MONTELUKAST SODIUM [Suspect]
     Active Substance: MONTELUKAST SODIUM
     Indication: Adverse drug reaction
     Dosage: UNK

REACTIONS (5)
  - Abnormal behaviour [Recovering/Resolving]
  - Tic [Recovering/Resolving]
  - Anxiety [Recovering/Resolving]
  - Contusion [Recovering/Resolving]
  - Nightmare [Recovering/Resolving]
